APPROVED DRUG PRODUCT: LINDANE
Active Ingredient: LINDANE
Strength: 1%
Dosage Form/Route: LOTION;TOPICAL
Application: A088190 | Product #001
Applicant: WOCKHARDT BIO AG
Approved: Aug 16, 1984 | RLD: No | RS: No | Type: DISCN